FAERS Safety Report 9959163 (Version 3)
Quarter: 2014Q3

REPORT INFORMATION
  Report Type: Spontaneous
  Country: US (occurrence: None)
  Receive Date: 20140227
  Receipt Date: 20140903
  Transmission Date: 20150326
  Serious: Yes (Hospitalization)
  Sender: FDA-Public Use
  Company Number: 2014MPI00120

PATIENT
  Age: 19 Year
  Sex: Male
  Weight: 78 kg

DRUGS (9)
  1. DACARBAZINE. [Suspect]
     Active Substance: DACARBAZINE
     Indication: HODGKIN^S DISEASE
     Dosage: 375 MG/M2 (710 MG) (A+AVD)
     Route: 042
     Dates: start: 20140122, end: 20140206
  2. PROCHLORPERAZINE MALEATE. [Concomitant]
     Active Substance: PROCHLORPERAZINE MALEATE
  3. FILGRASTIM [Concomitant]
     Active Substance: FILGRASTIM
  4. DOXORUBICIN [Suspect]
     Active Substance: DOXORUBICIN
     Indication: HODGKIN^S DISEASE
     Dosage: 25 MG/M2 (48 MG) (A+AVD)
     Route: 042
     Dates: start: 20140122, end: 20140206
  5. VINBLASTINE [Suspect]
     Active Substance: VINBLASTINE
     Indication: HODGKIN^S DISEASE
     Dosage: 6 MG/M2 (11 MG) (A+AVD)
     Route: 042
     Dates: start: 20140122, end: 20140206
  6. BRENTUXIMAB VEDOTIN [Suspect]
     Active Substance: BRENTUXIMAB VEDOTIN
     Indication: HODGKIN^S DISEASE
     Dosage: 1.2 MG/KG (91 MG) (A+AVD)
     Route: 042
     Dates: start: 20140122, end: 20140206
  7. ALLOPURINOL (ALLOPURINOL) [Concomitant]
     Active Substance: ALLOPURINOL
  8. PEGFILGRASTIM [Concomitant]
     Active Substance: PEGFILGRASTIM
  9. ROBITUSSIN COUGH AND COLD D [Concomitant]
     Active Substance: DEXTROMETHORPHAN HYDROBROMIDE\GUAIFENESIN\PSEUDOEPHEDRINE HYDROCHLORIDE

REACTIONS (14)
  - Febrile neutropenia [None]
  - Pancytopenia [None]
  - Haematocrit decreased [None]
  - Proctalgia [None]
  - Haemoglobin decreased [None]
  - Blood bilirubin increased [None]
  - Sinus tachycardia [None]
  - Blood pressure diastolic decreased [None]
  - Blood creatine phosphokinase decreased [None]
  - Tenderness [None]
  - Pneumonia [None]
  - Heart rate increased [None]
  - Tonsillitis [None]
  - Blood sodium decreased [None]

NARRATIVE: CASE EVENT DATE: 20140212
